FAERS Safety Report 13288775 (Version 3)
Quarter: 2018Q3

REPORT INFORMATION
  Report Type: Spontaneous
  Country: JP (occurrence: JP)
  Receive Date: 20170302
  Receipt Date: 20180705
  Transmission Date: 20181010
  Serious: Yes (Life-Threatening, Hospitalization, Other)
  Sender: FDA-Public Use
  Company Number: JP-BAUSCH-BL-2017-005259

PATIENT
  Age: 71 Year
  Sex: Male

DRUGS (1)
  1. METFORMIN [Suspect]
     Active Substance: METFORMIN HYDROCHLORIDE
     Indication: PRODUCT USED FOR UNKNOWN INDICATION
     Route: 065

REACTIONS (6)
  - Haemodynamic instability [Recovering/Resolving]
  - Metabolic acidosis [Recovering/Resolving]
  - Sepsis [Recovering/Resolving]
  - Shock [Recovering/Resolving]
  - Hypotension [Recovering/Resolving]
  - Lactic acidosis [Recovering/Resolving]
